FAERS Safety Report 17048691 (Version 1)
Quarter: 2019Q4

REPORT INFORMATION
  Report Type: Spontaneous
  Country: US (occurrence: US)
  Receive Date: 20191119
  Receipt Date: 20191119
  Transmission Date: 20200122
  Serious: No
  Sender: FDA-Public Use
  Company Number: US-IBSA PHARMA-TIR-2019-0794

PATIENT
  Sex: Female

DRUGS (1)
  1. TIROSINT [Suspect]
     Active Substance: LEVOTHYROXINE SODIUM
     Indication: PRODUCT USED FOR UNKNOWN INDICATION
     Route: 048

REACTIONS (2)
  - Gastrointestinal sounds abnormal [Unknown]
  - Gastrointestinal hypermotility [Unknown]
